FAERS Safety Report 15289762 (Version 1)
Quarter: 2018Q3

REPORT INFORMATION
  Report Type: Spontaneous
  Country: US (occurrence: US)
  Receive Date: 20180803
  Receipt Date: 20180803
  Transmission Date: 20181010
  Serious: Yes (Disabling, Other)
  Sender: FDA-Public Use
  Company Number: None

PATIENT
  Age: 36 Year
  Sex: Female
  Weight: 70.76 kg

DRUGS (3)
  1. MIRENA [Suspect]
     Active Substance: LEVONORGESTREL
     Dates: start: 20160817, end: 20180731
  2. VITEX [Concomitant]
  3. B12 BY B1 ZINC MAGNESIUM FLAXSEED OIL [Concomitant]

REACTIONS (6)
  - Depression [None]
  - Anxiety [None]
  - Impaired work ability [None]
  - Weight increased [None]
  - Anger [None]
  - Fatigue [None]

NARRATIVE: CASE EVENT DATE: 20160817
